FAERS Safety Report 5130334-7 (Version None)
Quarter: 2006Q4

REPORT INFORMATION
  Report Type: 
  Country: None (occurrence: None)
  Receive Date: 20061019
  Receipt Date: 20061010
  Transmission Date: 20070319
  Serious: Yes (Other)
  Sender: FDA-Public Use
  Company Number: DE-JNJFOC-20061002529

PATIENT
  Age: 30 Year
  Sex: Female

DRUGS (4)
  1. REMICADE [Suspect]
     Indication: OFF LABEL USE
     Route: 042
  2. REMICADE [Suspect]
     Indication: VASCULITIS
     Route: 042
  3. PREDNISOL [Concomitant]
     Indication: VASCULITIS
     Route: 065
  4. LEFLUNOMIDE [Concomitant]
     Indication: VASCULITIS
     Route: 065

REACTIONS (1)
  - VENTRICULAR EXTRASYSTOLES [None]
